FAERS Safety Report 22874483 (Version 2)
Quarter: 2024Q2

REPORT INFORMATION
  Report Type: Spontaneous
  Country: US (occurrence: US)
  Receive Date: 20230828
  Receipt Date: 20240412
  Transmission Date: 20240716
  Serious: No
  Sender: FDA-Public Use
  Company Number: US-009507513-2308USA001047

PATIENT
  Age: 22 Year
  Sex: Male

DRUGS (2)
  1. NOXAFIL [Suspect]
     Active Substance: POSACONAZOLE
     Indication: Disseminated coccidioidomycosis
     Dosage: 400 MILLIGRAM, QD
     Route: 048
  2. NOXAFIL [Suspect]
     Active Substance: POSACONAZOLE
     Indication: Coccidioidomycosis

REACTIONS (1)
  - Product use in unapproved indication [Unknown]
